FAERS Safety Report 5980188-1 (Version None)
Quarter: 2008Q4

REPORT INFORMATION
  Report Type: 
  Country: None (occurrence: None)
  Receive Date: 20081202
  Receipt Date: 20081202
  Transmission Date: 20090506
  Serious: No
  Sender: FDA-Public Use
  Company Number: None

PATIENT
  Age: 48 Year
  Sex: Male
  Weight: 83.4619 kg

DRUGS (1)
  1. PLAVIX [Suspect]
     Dosage: 1 1 A DAY
     Dates: start: 20060108, end: 20061214

REACTIONS (8)
  - CORONARY ARTERY OCCLUSION [None]
  - EYE DISORDER [None]
  - EYE PAIN [None]
  - HEADACHE [None]
  - MEMORY IMPAIRMENT [None]
  - PHOTOPHOBIA [None]
  - SUNBURN [None]
  - VISION BLURRED [None]
